FAERS Safety Report 6639097-7 (Version None)
Quarter: 2010Q1

REPORT INFORMATION
  Report Type: 
  Country: None (occurrence: None)
  Receive Date: 20100312
  Receipt Date: 20100301
  Transmission Date: 20100710
  Serious: Yes (Other)
  Sender: FDA-Public Use
  Company Number: DSA_42713_2010

PATIENT
  Age: 22 Year
  Sex: Male

DRUGS (1)
  1. ELONTRIL - BUPROPION HYDROCHLORIDE EXTENDED RELEASE [Suspect]
     Indication: DRUG USE FOR UNKNOWN INDICATION
     Dosage: (150 MG QD ORAL)
     Route: 048
     Dates: start: 20100101

REACTIONS (1)
  - HYPOGLYCAEMIA [None]
